FAERS Safety Report 19975753 (Version 1)
Quarter: 2021Q4

REPORT INFORMATION
  Report Type: Spontaneous
  Country: US (occurrence: US)
  Receive Date: 20211020
  Receipt Date: 20211020
  Transmission Date: 20220303
  Serious: Yes (Life-Threatening, Hospitalization)
  Sender: FDA-Public Use
  Company Number: US-LUPIN PHARMACEUTICALS INC.-2021-20025

PATIENT
  Age: 37 Year
  Sex: Female

DRUGS (3)
  1. MISOPROSTOL [Suspect]
     Active Substance: MISOPROSTOL
     Indication: Postpartum haemorrhage
     Dosage: UNK
     Route: 065
  2. METHERGINE [Suspect]
     Active Substance: METHYLERGONOVINE MALEATE
     Indication: Postpartum haemorrhage
     Dosage: UNK
     Route: 065
  3. HEMABATE [Suspect]
     Active Substance: CARBOPROST TROMETHAMINE
     Indication: Postpartum haemorrhage
     Dosage: UNK
     Route: 065

REACTIONS (1)
  - Drug ineffective [Unknown]
